FAERS Safety Report 14892307 (Version 1)
Quarter: 2018Q2

REPORT INFORMATION
  Report Type: Spontaneous
  Country: US (occurrence: US)
  Receive Date: 20180514
  Receipt Date: 20180514
  Transmission Date: 20180711
  Serious: No
  Sender: FDA-Public Use
  Company Number: US-UNITED THERAPEUTICS-UNT-2018-000656

PATIENT
  Age: 55 Year
  Sex: Female
  Weight: 76.64 kg

DRUGS (4)
  1. VELETRI [Concomitant]
     Active Substance: EPOPROSTENOL
     Indication: PRODUCT USED FOR UNKNOWN INDICATION
     Route: 065
  2. REMODULIN [Suspect]
     Active Substance: TREPROSTINIL
     Dosage: 0.08 ?G/KG, CONTINUING
     Route: 041
  3. REMODULIN [Suspect]
     Active Substance: TREPROSTINIL
     Dosage: UNK
     Route: 041
     Dates: start: 20180111
  4. REMODULIN [Suspect]
     Active Substance: TREPROSTINIL
     Indication: PULMONARY ARTERIAL HYPERTENSION
     Dosage: 0.089 ?G/KG, CONTINUING
     Route: 041
     Dates: start: 201801

REACTIONS (9)
  - Insomnia [Unknown]
  - Back pain [Unknown]
  - Feeling abnormal [Unknown]
  - Skin sensitisation [Unknown]
  - Increased appetite [Unknown]
  - Dermatitis contact [Unknown]
  - Pain in extremity [Unknown]
  - Injection site irritation [Unknown]
  - Headache [Unknown]

NARRATIVE: CASE EVENT DATE: 201801
